FAERS Safety Report 4699073-0 (Version None)
Quarter: 2005Q2

REPORT INFORMATION
  Report Type: 
  Country: None (occurrence: None)
  Receive Date: 20050624
  Receipt Date: 20050331
  Transmission Date: 20051028
  Serious: Yes (Hospitalization, Disabling)
  Sender: FDA-Public Use
  Company Number: US-ROCHE-400335

PATIENT
  Sex: Male
  Weight: 79.4 kg

DRUGS (4)
  1. ACCUTANE [Suspect]
     Indication: ACNE
     Route: 048
     Dates: start: 19980625, end: 19981014
  2. ACCUTANE [Suspect]
     Route: 048
     Dates: start: 19930915, end: 19931115
  3. ACCUTANE [Suspect]
     Route: 048
     Dates: start: 19990903, end: 20000215
  4. ACCUTANE [Suspect]
     Route: 048
     Dates: start: 20030929, end: 20040413

REACTIONS (9)
  - BLOOD CHOLESTEROL INCREASED [None]
  - COLITIS [None]
  - COLITIS ULCERATIVE [None]
  - EMOTIONAL DISTRESS [None]
  - GASTROINTESTINAL DISORDER [None]
  - INFLAMMATORY BOWEL DISEASE [None]
  - INTESTINAL HAEMORRHAGE [None]
  - MULTI-ORGAN DISORDER [None]
  - RECTAL HAEMORRHAGE [None]
